FAERS Safety Report 14815559 (Version 3)
Quarter: 2018Q2

REPORT INFORMATION
  Report Type: Spontaneous
  Country: ES (occurrence: ES)
  Receive Date: 20180426
  Receipt Date: 20180515
  Transmission Date: 20180711
  Serious: Yes (Other)
  Sender: FDA-Public Use
  Company Number: ES-ASTRAZENECA-2018SE52774

PATIENT
  Age: 8 Year
  Sex: Male

DRUGS (6)
  1. CETIRIZINE [Suspect]
     Active Substance: CETIRIZINE HYDROCHLORIDE
     Indication: MASTOCYTOSIS
     Route: 065
  2. SODIUM CROMOGLYCATE [Concomitant]
     Active Substance: CROMOLYN SODIUM
     Indication: MASTOCYTOSIS
     Route: 048
  3. OMEPRAZOLE. [Suspect]
     Active Substance: OMEPRAZOLE
     Indication: ABDOMINAL PAIN
     Route: 065
  4. FLUNARIZINE [Concomitant]
     Active Substance: FLUNARIZINE
     Indication: MIGRAINE
     Route: 048
  5. FLUNARIZINE [Concomitant]
     Active Substance: FLUNARIZINE
     Indication: INTUSSUSCEPTION
     Route: 048
  6. OMEPRAZOLE. [Suspect]
     Active Substance: OMEPRAZOLE
     Indication: ABDOMINAL PAIN
     Route: 065

REACTIONS (1)
  - Hypertrichosis [Recovered/Resolved]
